FAERS Safety Report 8410249-9 (Version None)
Quarter: 2012Q2

REPORT INFORMATION
  Report Type: 
  Country: None (occurrence: None)
  Receive Date: 20120605
  Receipt Date: 20120531
  Transmission Date: 20120825
  Serious: Yes (Other)
  Sender: FDA-Public Use
  Company Number: PHHY2012AT046888

PATIENT
  Sex: Male

DRUGS (3)
  1. EXELON [Suspect]
     Dosage: 4.6 MG
     Route: 062
  2. ANTIBIOTICS [Concomitant]
  3. DIURETICS [Concomitant]

REACTIONS (3)
  - MENINGITIS VIRAL [None]
  - PYREXIA [None]
  - HYPERHIDROSIS [None]
